FAERS Safety Report 5441955-6 (Version None)
Quarter: 2007Q3

REPORT INFORMATION
  Report Type: 
  Country: None (occurrence: None)
  Receive Date: 20070904
  Receipt Date: 20070827
  Transmission Date: 20080115
  Serious: Yes (Congenital Anomaly, Other)
  Sender: FDA-Public Use
  Company Number: A0677863A

PATIENT
  Sex: Male
  Weight: 3.8 kg

DRUGS (1)
  1. LAMICTAL [Suspect]
     Indication: EPILEPSY

REACTIONS (3)
  - ATRIAL SEPTAL DEFECT [None]
  - DRUG EXPOSURE DURING PREGNANCY [None]
  - VENTRICULAR SEPTAL DEFECT [None]
